FAERS Safety Report 6603779-3 (Version None)
Quarter: 2010Q1

REPORT INFORMATION
  Report Type: 
  Country: None (occurrence: None)
  Receive Date: 20100226
  Receipt Date: 20090330
  Transmission Date: 20100710
  Serious: Yes (Disabling, Other)
  Sender: FDA-Public Use
  Company Number: A0765293A

PATIENT
  Age: 52 Year
  Sex: Female

DRUGS (2)
  1. LAMICTAL CD [Suspect]
     Indication: DEPRESSION
     Route: 048
  2. NEXIUM [Concomitant]

REACTIONS (1)
  - ABDOMINAL PAIN UPPER [None]
